FAERS Safety Report 12297194 (Version 2)
Quarter: 2016Q2

REPORT INFORMATION
  Report Type: Report from Study
  Country: US (occurrence: US)
  Receive Date: 20160422
  Receipt Date: 20160620
  Transmission Date: 20160815
  Serious: No
  Sender: FDA-Public Use
  Company Number: US-THERATECHNOLOGIES, INC.-TH-2016-00040

PATIENT
  Age: 63 Year
  Sex: Male
  Weight: 124.85 kg

DRUGS (1)
  1. EGRIFTA [Suspect]
     Active Substance: TESAMORELIN
     Indication: WEIGHT INCREASED
     Dosage: UNKNOWN
     Dates: start: 20160401, end: 20160412

REACTIONS (3)
  - Joint swelling [Recovered/Resolved]
  - Hypertension [Recovered/Resolved]
  - Weight increased [Recovered/Resolved]

NARRATIVE: CASE EVENT DATE: 20160407
